FAERS Safety Report 6767858-2 (Version None)
Quarter: 2010Q2

REPORT INFORMATION
  Report Type: 
  Country: None (occurrence: None)
  Receive Date: 20100614
  Receipt Date: 20100602
  Transmission Date: 20101027
  Serious: Yes (Hospitalization, Other)
  Sender: FDA-Public Use
  Company Number: PHHY2010US33253

PATIENT
  Age: 39 Year
  Sex: Male

DRUGS (5)
  1. RECLAST [Suspect]
     Indication: FIBROUS DYSPLASIA OF BONE
     Dosage: 5 MG, UNK
     Route: 042
     Dates: start: 20100408, end: 20100408
  2. LISINOPRIL [Concomitant]
     Indication: HYPERTENSION
     Dosage: 20/121.5 MG DAILY
     Route: 048
     Dates: start: 20080101
  3. CIMETIDINE [Concomitant]
     Indication: GASTROOESOPHAGEAL REFLUX DISEASE
     Dosage: UNK
     Route: 048
     Dates: start: 20090101
  4. VITAMIN C [Concomitant]
     Dosage: DAILY
     Route: 048
     Dates: start: 20090101
  5. VITAMIN D [Concomitant]
     Dosage: UNK
     Route: 048
     Dates: start: 20090101

REACTIONS (2)
  - ASPIRATION PLEURAL CAVITY [None]
  - PLEURAL EFFUSION [None]
